FAERS Safety Report 8060448-3 (Version None)
Quarter: 2012Q1

REPORT INFORMATION
  Report Type: 
  Country: None (occurrence: None)
  Receive Date: 20120120
  Receipt Date: 20120112
  Transmission Date: 20120608
  Serious: Yes (Hospitalization)
  Sender: FDA-Public Use
  Company Number: FR-GLAXOSMITHKLINE-B0774907A

PATIENT
  Sex: Male
  Weight: 10 kg

DRUGS (1)
  1. ZOVIRAX [Suspect]
     Indication: ENCEPHALITIS HERPES
     Dosage: 750MG SINGLE DOSE
     Route: 042
     Dates: start: 20111218, end: 20111218

REACTIONS (3)
  - MEDICATION ERROR [None]
  - ACCIDENTAL OVERDOSE [None]
  - RENAL FAILURE ACUTE [None]
